FAERS Safety Report 7330118-5 (Version None)
Quarter: 2011Q1

REPORT INFORMATION
  Report Type: 
  Country: None (occurrence: None)
  Receive Date: 20110303
  Receipt Date: 20110223
  Transmission Date: 20110831
  Serious: Yes (Hospitalization)
  Sender: FDA-Public Use
  Company Number: NL-MEDIMMUNE-MEDI-0012407

PATIENT
  Sex: Male
  Weight: 7.5 kg

DRUGS (5)
  1. ACETYLSALICYLIC ACID [Concomitant]
     Dates: start: 20100101
  2. SYNAGIS [Suspect]
     Route: 030
     Dates: start: 20101007, end: 20101231
  3. FUROSEMIDE [Concomitant]
     Dates: start: 20100101
  4. ACETYLSALICYLATE CALCIUM [Concomitant]
  5. SPIRONOLACTONE [Concomitant]
     Dates: start: 20100101

REACTIONS (4)
  - DYSPNOEA [None]
  - INFANTILE SPITTING UP [None]
  - RESPIRATORY SYNCYTIAL VIRUS INFECTION [None]
  - COUGH [None]
